FAERS Safety Report 7679553-6 (Version None)
Quarter: 2011Q3

REPORT INFORMATION
  Report Type: 
  Country: None (occurrence: None)
  Receive Date: 20110808
  Receipt Date: 20110725
  Transmission Date: 20111222
  Serious: Yes (Hospitalization, Disabling, Other)
  Sender: FDA-Public Use
  Company Number: 2010SP007781

PATIENT
  Age: 39 Year
  Sex: Female
  Weight: 79.3795 kg

DRUGS (5)
  1. NUVARING [Suspect]
     Indication: MENSTRUAL DISORDER
     Dosage: QM, VAG
     Route: 067
     Dates: start: 20061004
  2. MULTI-VITAMIN [Concomitant]
  3. AMBIEN [Suspect]
     Indication: TACHYCARDIA
     Dates: start: 20090301
  4. ZYRTEC [Concomitant]
  5. UNSPECIFIED SUPPLEMENT [Concomitant]

REACTIONS (27)
  - PULMONARY EMBOLISM [None]
  - CHOLELITHIASIS [None]
  - BLOOD TRIGLYCERIDES INCREASED [None]
  - ACNE [None]
  - SEBORRHOEIC KERATOSIS [None]
  - UTERINE LEIOMYOMA [None]
  - TACHYCARDIA [None]
  - THROMBOSIS [None]
  - BLOOD CHOLESTEROL INCREASED [None]
  - OROPHARYNGEAL PAIN [None]
  - BASAL CELL CARCINOMA [None]
  - HEPATIC CYST [None]
  - INTERVERTEBRAL DISC PROTRUSION [None]
  - CELLULITIS [None]
  - PAIN [None]
  - DEEP VEIN THROMBOSIS [None]
  - ANXIETY [None]
  - PHLEBITIS [None]
  - MELANOCYTIC NAEVUS [None]
  - MULTIPLE INJURIES [None]
  - CHEST PAIN [None]
  - GALLBLADDER DISORDER [None]
  - SPINAL OSTEOARTHRITIS [None]
  - DEHYDRATION [None]
  - EAR PAIN [None]
  - INSOMNIA [None]
  - ABDOMINAL PAIN LOWER [None]
